FAERS Safety Report 23789918 (Version 1)
Quarter: 2024Q2

REPORT INFORMATION
  Report Type: Spontaneous
  Country: US (occurrence: None)
  Receive Date: 20240424
  Receipt Date: 20240424
  Transmission Date: 20240716
  Serious: Yes (Hospitalization)
  Sender: FDA-Public Use
  Company Number: None

PATIENT
  Age: 77 Year
  Sex: Male

DRUGS (1)
  1. INSULIN GLARGINE-YFGN [Suspect]
     Active Substance: INSULIN GLARGINE-YFGN
     Indication: Diabetes mellitus
     Dosage: OTHER QUANTITY : 50 UNITS;?OTHER FREQUENCY : AM;?
     Route: 058
     Dates: start: 20230919, end: 20240102

REACTIONS (4)
  - Syncope [None]
  - Hypoglycaemia [None]
  - Syncope [None]
  - Chronic kidney disease [None]
